FAERS Safety Report 5265943-8 (Version None)
Quarter: 2007Q1

REPORT INFORMATION
  Report Type: 
  Country: None (occurrence: None)
  Receive Date: 20070312
  Receipt Date: 20070312
  Transmission Date: 20070707
  Serious: Yes (Other)
  Sender: FDA-Public Use
  Company Number: None

PATIENT
  Age: 40 Year
  Sex: Female
  Weight: 108.8633 kg

DRUGS (1)
  1. LEVAQUIN [Suspect]
     Indication: STREPTOCOCCAL INFECTION
     Dosage: 500MG 1X DAILY PO
     Route: 048
     Dates: start: 20061121, end: 20061128

REACTIONS (7)
  - DRUG HYPERSENSITIVITY [None]
  - DYSPNOEA [None]
  - EYE PRURITUS [None]
  - EYELID OEDEMA [None]
  - FLUSHING [None]
  - HEADACHE [None]
  - URTICARIA [None]
